FAERS Safety Report 10022442 (Version 3)
Quarter: 2014Q2

REPORT INFORMATION
  Report Type: Spontaneous
  Country: IT (occurrence: IT)
  Receive Date: 20140319
  Receipt Date: 20140616
  Transmission Date: 20141212
  Serious: Yes (Hospitalization)
  Sender: FDA-Public Use
  Company Number: IT-TEVA-469418USA

PATIENT
  Age: 69 Year
  Sex: Male
  Weight: 60 kg

DRUGS (12)
  1. LEVACT [Suspect]
     Indication: CHRONIC LYMPHOCYTIC LEUKAEMIA
     Route: 041
     Dates: start: 20131029, end: 20140108
  2. LEVACT [Suspect]
     Route: 065
     Dates: start: 20140129
  3. LEVACT [Suspect]
     Route: 065
     Dates: start: 20140225
  4. MABTHERA [Suspect]
     Indication: CHRONIC LYMPHOCYTIC LEUKAEMIA
     Route: 042
     Dates: start: 20131028, end: 20140108
  5. MABTHERA [Suspect]
     Route: 065
     Dates: start: 20140129
  6. MABTHERA [Suspect]
     Route: 065
     Dates: start: 20140225
  7. HUMAN IMMUNOGLBULIN [Concomitant]
     Indication: SECONDARY IMMUNODEFICIENCY
     Route: 042
     Dates: start: 20131022, end: 20140128
  8. HUMAN IMMUNOGLBULIN [Concomitant]
     Route: 042
     Dates: start: 20140225
  9. CHLORPHENAMINE [Concomitant]
     Indication: SUPPORTIVE CARE
     Route: 042
  10. METHYLPREDNISOLONE [Concomitant]
     Indication: SUPPORTIVE CARE
     Route: 042
  11. PARACETAMOL [Concomitant]
     Indication: SUPPORTIVE CARE
     Dosage: 1 UNK, UNKNOWN FREQ.
     Route: 048
  12. ALIZAPRIDE [Concomitant]
     Indication: SUPPORTIVE CARE
     Route: 065

REACTIONS (2)
  - Pancytopenia [Recovered/Resolved]
  - Pyrexia [Recovered/Resolved]
